FAERS Safety Report 26138504 (Version 1)
Quarter: 2025Q4

REPORT INFORMATION
  Report Type: Spontaneous
  Country: EU (occurrence: EU)
  Receive Date: 20251210
  Receipt Date: 20251210
  Transmission Date: 20260118
  Serious: Yes (Hospitalization)
  Sender: NOVARTIS
  Company Number: EU-002147023-NVSC2025DE187653

PATIENT
  Age: 80 Year
  Sex: Female

DRUGS (1)
  1. BEOVU [Suspect]
     Active Substance: BROLUCIZUMAB-DBLL
     Indication: Age-related macular degeneration
     Dosage: UNK (RIGHT EYE)
     Route: 031

REACTIONS (3)
  - Retinal vasculitis [Recovered/Resolved]
  - Uveitis [Recovered/Resolved]
  - Vitreous disorder [Recovered/Resolved]
